FAERS Safety Report 13665757 (Version 1)
Quarter: 2017Q2

REPORT INFORMATION
  Report Type: Spontaneous
  Country: DK (occurrence: DK)
  Receive Date: 20170619
  Receipt Date: 20170619
  Transmission Date: 20170830
  Serious: Yes (Hospitalization, Other)
  Sender: FDA-Public Use
  Company Number: DK-NOVOPROD-549476

PATIENT
  Sex: Male

DRUGS (1)
  1. NOVOSEVEN [Suspect]
     Active Substance: COAGULATION FACTOR VIIA RECOMBINANT HUMAN
     Indication: INTERNAL HAEMORRHAGE
     Dosage: UNK
     Route: 065

REACTIONS (6)
  - Aphasia [Unknown]
  - Sight disability [Unknown]
  - Off label use [Unknown]
  - Thrombosis [Recovered/Resolved with Sequelae]
  - Coma [Recovered/Resolved]
  - Stoma complication [Unknown]
